FAERS Safety Report 12930487 (Version 2)
Quarter: 2016Q4

REPORT INFORMATION
  Report Type: Spontaneous
  Country: JP (occurrence: JP)
  Receive Date: 20161110
  Receipt Date: 20161219
  Transmission Date: 20170207
  Serious: Yes (Other)
  Sender: FDA-Public Use
  Company Number: JP-REGENERON PHARMACEUTICALS, INC.-2016-23714

PATIENT

DRUGS (10)
  1. LANTUS [Concomitant]
     Active Substance: INSULIN GLARGINE
     Indication: PRODUCT USED FOR UNKNOWN INDICATION
     Dosage: DAILY DOSE 22 U
     Route: 058
     Dates: start: 20151224
  2. METFORMIN HYDROCHLORIDE. [Concomitant]
     Active Substance: METFORMIN HYDROCHLORIDE
     Indication: PRODUCT USED FOR UNKNOWN INDICATION
     Dosage: DAILY DOSE 750 MG
     Route: 048
     Dates: start: 20150910
  3. VEGAMOX [Concomitant]
     Active Substance: MOXIFLOXACIN HYDROCHLORIDE
     Indication: PRODUCT USED FOR UNKNOWN INDICATION
     Dosage: DAILY DOSE 5 GTT
     Route: 047
  4. PRASUGREL [Suspect]
     Active Substance: PRASUGREL
     Indication: CORONARY ARTERY STENOSIS
     Dosage: DAILY DOSE 3.75 MG
     Route: 048
     Dates: start: 20160223
  5. EYLEA [Suspect]
     Active Substance: AFLIBERCEPT
     Indication: DIABETIC RETINAL OEDEMA
     Dosage: 2 MG, ONCE
     Route: 031
     Dates: start: 20160609, end: 20160609
  6. BAYASPIRIN [Suspect]
     Active Substance: ASPIRIN
     Indication: CORONARY ARTERY STENOSIS
     Dosage: DAILY DOSE 100 MG
     Route: 048
     Dates: start: 20160223
  7. GLACTIV [Concomitant]
     Active Substance: SITAGLIPTIN
     Indication: DIABETES MELLITUS
     Dosage: DAILY DOSE 50 MG
     Route: 048
     Dates: start: 20141225
  8. EYLEA [Suspect]
     Active Substance: AFLIBERCEPT
     Dosage: 2 MG, ONCE
     Route: 031
     Dates: start: 20161018, end: 20161018
  9. ATORVASTATIN [Concomitant]
     Active Substance: ATORVASTATIN
     Indication: LIPIDS ABNORMAL
     Dosage: DAILY DOSE 10 MG
     Route: 048
     Dates: start: 20160223
  10. EYLEA [Suspect]
     Active Substance: AFLIBERCEPT
     Dosage: 2 MG, ONCE
     Route: 031
     Dates: start: 20160719, end: 20160719

REACTIONS (6)
  - Conjunctival haemorrhage [Recovering/Resolving]
  - Vitreous haemorrhage [Recovering/Resolving]
  - Drug administration error [Recovering/Resolving]
  - Drug interaction [Unknown]
  - Injection site haemorrhage [Unknown]
  - Labelled drug-drug interaction medication error [Recovering/Resolving]

NARRATIVE: CASE EVENT DATE: 2016
